FAERS Safety Report 5214011-X (Version None)
Quarter: 2007Q1

REPORT INFORMATION
  Report Type: 
  Country: None (occurrence: None)
  Receive Date: 20070122
  Receipt Date: 20070111
  Transmission Date: 20070707
  Serious: Yes (Other)
  Sender: FDA-Public Use
  Company Number: DE-JNJFOC-20070102189

PATIENT

DRUGS (3)
  1. RISPERDAL CONSTA [Suspect]
     Indication: INTENTIONAL DRUG MISUSE
     Route: 042
  2. ALCOHOLIC BEVERAGE [Suspect]
     Indication: DRUG USE FOR UNKNOWN INDICATION
  3. THOMAPYRIN [Suspect]
     Indication: DRUG USE FOR UNKNOWN INDICATION
     Route: 048

REACTIONS (3)
  - INCORRECT ROUTE OF DRUG ADMINISTRATION [None]
  - INTENTIONAL DRUG MISUSE [None]
  - PSYCHOTIC DISORDER [None]
